FAERS Safety Report 8885039 (Version 1)
Quarter: 2012Q4

REPORT INFORMATION
  Report Type: 
  Country: US (occurrence: US)
  Receive Date: 20121102
  Receipt Date: 20121102
  Transmission Date: 20130627
  Serious: No
  Sender: FDA-Public Use
  Company Number: US-PFIZER INC-2012272016

PATIENT
  Age: 74 Year
  Sex: Male
  Weight: 83.45 kg

DRUGS (5)
  1. LYRICA [Suspect]
     Indication: PAIN
     Dosage: 100 mg, 2x/day
     Route: 048
  2. LYRICA [Suspect]
     Dosage: UNK
     Route: 048
     Dates: end: 201204
  3. WELCHOL [Concomitant]
     Indication: DIABETES
     Dosage: UNK
  4. METFORMIN [Concomitant]
     Indication: DIABETES
     Dosage: UNK
  5. ZOCOR [Concomitant]
     Dosage: UNK

REACTIONS (1)
  - Drug ineffective [Unknown]
